FAERS Safety Report 5977695-4 (Version None)
Quarter: 2008Q4

REPORT INFORMATION
  Report Type: 
  Country: None (occurrence: None)
  Receive Date: 20081203
  Receipt Date: 20081202
  Transmission Date: 20090506
  Serious: No
  Sender: FDA-Public Use
  Company Number: US-EISAI MEDICAL RESEARCH-E2020-03734-CLI-US

PATIENT
  Sex: Male
  Weight: 97.1 kg

DRUGS (5)
  1. DONEPEZIL HCL [Suspect]
     Indication: DEMENTIA ALZHEIMER'S TYPE
     Route: 048
     Dates: start: 20080709
  2. DIOVAN [Concomitant]
     Indication: HYPERTENSION
     Route: 048
     Dates: start: 19980101
  3. PROPANOLOL ER [Concomitant]
     Indication: HYPERTENSION
     Route: 048
     Dates: start: 19980101
  4. RISPERDAL [Concomitant]
     Indication: AGGRESSION
     Route: 048
     Dates: start: 20080201
  5. RISPERDAL [Concomitant]
     Indication: ANXIETY

REACTIONS (2)
  - TREMOR [None]
  - UNRESPONSIVE TO STIMULI [None]
